APPROVED DRUG PRODUCT: ALCAFTADINE
Active Ingredient: ALCAFTADINE
Strength: 0.25%
Dosage Form/Route: SOLUTION/DROPS;OPHTHALMIC
Application: A209290 | Product #001
Applicant: ALEMBIC PHARMACEUTICALS LTD
Approved: Oct 2, 2024 | RLD: No | RS: No | Type: OTC